FAERS Safety Report 5859228-6 (Version None)
Quarter: 2008Q3

REPORT INFORMATION
  Report Type: 
  Country: None (occurrence: None)
  Receive Date: 20080826
  Receipt Date: 20080826
  Transmission Date: 20090109
  Serious: Yes (Death)
  Sender: FDA-Public Use
  Company Number: None

PATIENT
  Age: 79 Year
  Sex: Female

DRUGS (1)
  1. PROVIGIL [Suspect]

REACTIONS (10)
  - ATRIAL FIBRILLATION [None]
  - BLOOD GLUCOSE DECREASED [None]
  - CARDIO-RESPIRATORY ARREST [None]
  - EJECTION FRACTION DECREASED [None]
  - LOSS OF CONSCIOUSNESS [None]
  - NAUSEA [None]
  - PERIPHERAL VASCULAR DISORDER [None]
  - TACHYCARDIA [None]
  - VENTRICULAR DYSFUNCTION [None]
  - VOMITING [None]
